FAERS Safety Report 17741764 (Version 1)
Quarter: 2020Q2

REPORT INFORMATION
  Report Type: Report from Study
  Country: CO (occurrence: CO)
  Receive Date: 20200504
  Receipt Date: 20200504
  Transmission Date: 20200714
  Serious: Yes (Other)
  Sender: FDA-Public Use
  Company Number: NVSC2018CO003693

PATIENT
  Sex: Male

DRUGS (1)
  1. EXJADE [Suspect]
     Active Substance: DEFERASIROX
     Indication: METHAEMOGLOBINAEMIA
     Dosage: 2 DF, QD
     Route: 048

REACTIONS (2)
  - Product use in unapproved indication [Unknown]
  - Haemoglobin decreased [Unknown]
